FAERS Safety Report 7824003-X (Version None)
Quarter: 2011Q4

REPORT INFORMATION
  Report Type: 
  Country: None (occurrence: None)
  Receive Date: 20111014
  Receipt Date: 20111005
  Transmission Date: 20120403
  Serious: Yes (Hospitalization, Other)
  Sender: FDA-Public Use
  Company Number: AUR-APL-2011-05036

PATIENT
  Age: 88 Year
  Sex: Female

DRUGS (6)
  1. ASPIRIN [Concomitant]
  2. BENDROFLUMETHIAZIDE (BENDROFLUMETHIAZIDE) [Suspect]
     Indication: HYPERTENSION
     Dosage: 2.5 MG (2.5 MG, 1 IN 1 D), ORAL
     Route: 048
     Dates: end: 20110729
  3. BENDROFLUMETHIAZIDE [Concomitant]
  4. SOTALOL HCL [Concomitant]
  5. METFORMIN HCL [Suspect]
     Indication: PRODUCT USED FOR UNKNOWN INDICATION
     Dosage: 2 GM (1 GM, 2 IN 1 D), ORAL
     Route: 048
     Dates: end: 20110729
  6. GLICLAZIDE [Concomitant]

REACTIONS (2)
  - DIARRHOEA [None]
  - BLOOD GLUCOSE ABNORMAL [None]
